FAERS Safety Report 7204860-0 (Version None)
Quarter: 2010Q4

REPORT INFORMATION
  Report Type: 
  Country: None (occurrence: None)
  Receive Date: 20101230
  Receipt Date: 20101222
  Transmission Date: 20110411
  Serious: Yes (Other)
  Sender: FDA-Public Use
  Company Number: SE-ABBOTT-10P-150-0693355-00

PATIENT
  Age: 24 Year
  Sex: Male

DRUGS (2)
  1. ERGENYL [Suspect]
     Indication: EPILEPSY
     Route: 048
     Dates: start: 20100601, end: 20100901
  2. ERGENYL [Suspect]
     Dosage: 500 MG DAILY
     Route: 048
     Dates: start: 20100901, end: 20101209

REACTIONS (3)
  - ACCIDENT [None]
  - CONVULSION [None]
  - DRUG INEFFECTIVE [None]
